FAERS Safety Report 19657724 (Version 4)
Quarter: 2021Q3

REPORT INFORMATION
  Report Type: Spontaneous
  Country: US (occurrence: US)
  Receive Date: 20210804
  Receipt Date: 20210823
  Transmission Date: 20211014
  Serious: No
  Sender: FDA-Public Use
  Company Number: US-SA-2021SA254357

PATIENT
  Age: 74 Year
  Sex: Male

DRUGS (1)
  1. LANTUS SOLOSTAR [Suspect]
     Active Substance: INSULIN GLARGINE
     Indication: TYPE 2 DIABETES MELLITUS
     Dosage: 60 IU, QD
     Route: 065

REACTIONS (4)
  - Device issue [Recovering/Resolving]
  - Blood glucose increased [Recovering/Resolving]
  - Drug dose omission by device [Recovering/Resolving]
  - Eye movement disorder [Recovering/Resolving]
